FAERS Safety Report 22757996 (Version 3)
Quarter: 2024Q1

REPORT INFORMATION
  Report Type: Spontaneous
  Country: US (occurrence: US)
  Receive Date: 20230727
  Receipt Date: 20240228
  Transmission Date: 20240410
  Serious: No
  Sender: FDA-Public Use
  Company Number: US-BRISTOL-MYERS SQUIBB COMPANY-2023-105913

PATIENT
  Age: 70 Year
  Sex: Female

DRUGS (1)
  1. POMALYST [Suspect]
     Active Substance: POMALIDOMIDE
     Indication: Plasma cell myeloma
     Dosage: FREQUENCY: OTHER?CYCLIC
     Route: 048

REACTIONS (8)
  - Tremor [Unknown]
  - Insomnia [Unknown]
  - Abdominal pain upper [Unknown]
  - Fatigue [Unknown]
  - Headache [Unknown]
  - Balance disorder [Unknown]
  - Nausea [Unknown]
  - COVID-19 [Recovering/Resolving]
